FAERS Safety Report 5650075-7 (Version None)
Quarter: 2008Q1

REPORT INFORMATION
  Report Type: 
  Country: None (occurrence: None)
  Receive Date: 20080303
  Receipt Date: 20080215
  Transmission Date: 20080703
  Serious: Yes (Hospitalization)
  Sender: FDA-Public Use
  Company Number: A-US2008-19576

PATIENT
  Age: 59 Year
  Sex: Female

DRUGS (1)
  1. TRACLEER [Suspect]
     Indication: PULMONARY HYPERTENSION
     Dosage: ORAL
     Route: 048
     Dates: start: 20050620, end: 20080215

REACTIONS (1)
  - LIVER FUNCTION TEST ABNORMAL [None]
